FAERS Safety Report 4721067-7 (Version None)
Quarter: 2005Q3

REPORT INFORMATION
  Report Type: 
  Country: None (occurrence: None)
  Receive Date: 20050719
  Receipt Date: 20041101
  Transmission Date: 20060218
  Serious: Yes (Other)
  Sender: FDA-Public Use
  Company Number: 2004242577US

PATIENT
  Age: 82 Year
  Sex: Female
  Weight: 69.8 kg

DRUGS (9)
  1. CELEBREX [Suspect]
     Indication: OSTEOARTHRITIS
     Dosage: 200 MG, QD, ORAL
     Route: 048
  2. METOPROLOL [Concomitant]
  3. VALSARTAN [Concomitant]
  4. HYDROCHLOROTHIAZIDE [Concomitant]
  5. ZOCOR [Concomitant]
  6. DITROPAN [Concomitant]
  7. ACIPHEX [Concomitant]
  8. ECOTRIN [Concomitant]
  9. OSCAL [Concomitant]

REACTIONS (2)
  - CORONARY ARTERY DISEASE [None]
  - HYPERTONIC BLADDER [None]
